FAERS Safety Report 6571527-1 (Version None)
Quarter: 2010Q1

REPORT INFORMATION
  Report Type: 
  Country: None (occurrence: None)
  Receive Date: 20100205
  Receipt Date: 20100201
  Transmission Date: 20100710
  Serious: Yes (Death, Life-Threatening)
  Sender: FDA-Public Use
  Company Number: DE-ASTRAZENECA-2009SE31466

PATIENT
  Age: 12934 Day
  Sex: Female
  Weight: 76.2 kg

DRUGS (44)
  1. SEROQUEL [Suspect]
     Indication: BORDERLINE PERSONALITY DISORDER
     Route: 048
  2. SEROQUEL [Suspect]
     Dosage: 150-150-0-0 MG
     Route: 048
     Dates: start: 20091130, end: 20091130
  3. SEROQUEL [Suspect]
     Dosage: 0-150-0-0 MG
     Route: 048
     Dates: start: 20091204, end: 20091204
  4. SEROQUEL [Suspect]
     Dosage: 150-150-0-0 MG
     Route: 048
     Dates: start: 20091205, end: 20091205
  5. SEROQUEL [Suspect]
     Route: 048
  6. SEROQUEL [Suspect]
     Dosage: 0-0-0-100 MG
     Route: 048
     Dates: start: 20091125, end: 20091127
  7. SEROQUEL [Suspect]
     Dosage: 0-0-0-200 MG
     Route: 048
     Dates: start: 20091128, end: 20091128
  8. SEROQUEL [Suspect]
     Dosage: 1000-0-0-100 MG
     Route: 048
     Dates: start: 20091129, end: 20091129
  9. SEROQUEL [Suspect]
     Dosage: 100-0-0-200 MG
     Route: 048
     Dates: start: 20091130, end: 20091204
  10. SEROQUEL [Suspect]
     Dosage: 100-0-0-200 MG
     Route: 048
     Dates: start: 20091207, end: 20091211
  11. SEROQUEL [Suspect]
     Route: 048
     Dates: start: 20091207
  12. SEROQUEL [Suspect]
     Route: 048
     Dates: start: 20091207
  13. SEROQUEL [Suspect]
     Route: 048
     Dates: start: 20091210
  14. CONTRACEPTIVA [Concomitant]
  15. ZYPREXA [Concomitant]
     Dosage: 0-0-0-25 MG
     Dates: start: 20091123, end: 20091130
  16. TAVOR [Concomitant]
     Dosage: 0.5-0.5-1 MG
     Dates: start: 20091123, end: 20091129
  17. TAVOR [Concomitant]
     Dosage: 0.5-0-1 MG
     Dates: start: 20091130, end: 20091207
  18. TAVOR [Concomitant]
     Dosage: 0-0-1 MG
     Dates: start: 20091208, end: 20091211
  19. TAVOR [Concomitant]
     Dates: start: 20091123
  20. TAVOR [Concomitant]
     Dates: start: 20091202
  21. MIRTAZAPINE [Concomitant]
     Dosage: 0-0-15 MG
     Dates: start: 20091123, end: 20091203
  22. ATOSIL [Concomitant]
     Dosage: 0-0-0-100 MG
     Dates: start: 20091125, end: 20091126
  23. ATOSIL [Concomitant]
     Dosage: 0-50-50-100 MG
     Dates: start: 20091128, end: 20091202
  24. ATOSIL [Concomitant]
     Dosage: 0-50-0-100 MG
     Dates: start: 20091203, end: 20091204
  25. ATOSIL [Concomitant]
     Dosage: 50-50-100 MG
     Dates: start: 20091207, end: 20091209
  26. ATOSIL [Concomitant]
     Dosage: 0-50-0-100 MG
     Dates: start: 20091210, end: 20091211
  27. ATOSIL [Concomitant]
     Dates: start: 20091124
  28. ATOSIL [Concomitant]
     Dates: start: 20091126
  29. ATOSIL [Concomitant]
     Dates: start: 20091127
  30. ATOSIL [Concomitant]
     Dates: start: 20091128
  31. ATOSIL [Concomitant]
     Dates: start: 20091201
  32. ATOSIL [Concomitant]
     Dates: start: 20091203
  33. ATOSIL [Concomitant]
     Dates: start: 20091207
  34. ATOSIL [Concomitant]
     Dates: start: 20091208
  35. ATOSIL [Concomitant]
     Dates: start: 20091209
  36. ATOSIL [Concomitant]
     Dates: start: 20091210
  37. ARNICA C30 GLOBULES [Concomitant]
     Dosage: 3
     Dates: start: 20091124
  38. METOCLOPRAMIDE HYDROCHLORIDE [Concomitant]
     Dates: start: 20091125
  39. METOCLOPRAMIDE HYDROCHLORIDE [Concomitant]
     Dates: start: 20091201
  40. METOCLOPRAMIDE HYDROCHLORIDE [Concomitant]
     Dates: start: 20091202
  41. IBEROGAST [Concomitant]
     Dates: start: 20091127
  42. IBEROGAST [Concomitant]
     Dates: start: 20091128
  43. PROMETHAZINE [Concomitant]
     Dosage: UP TO 250 MG/DAY MAX
  44. PROMETHAZINE [Concomitant]
     Dosage: MAX 200 MG/DAY

REACTIONS (2)
  - COMA [None]
  - PULMONARY EMBOLISM [None]
